FAERS Safety Report 24973364 (Version 1)
Quarter: 2025Q1

REPORT INFORMATION
  Report Type: Report from Study
  Country: CO (occurrence: CO)
  Receive Date: 20250216
  Receipt Date: 20250216
  Transmission Date: 20250409
  Serious: Yes (Death, Hospitalization)
  Sender: ABBVIE
  Company Number: CO-ABBVIE-6136204

PATIENT
  Sex: Male
  Weight: 52 kg

DRUGS (1)
  1. SKYRIZI [Suspect]
     Active Substance: RISANKIZUMAB-RZAA
     Indication: Psoriasis
     Route: 058
     Dates: start: 20240412, end: 20241122

REACTIONS (3)
  - Respiratory arrest [Fatal]
  - Chronic obstructive pulmonary disease [Not Recovered/Not Resolved]
  - Chest pain [Unknown]
